FAERS Safety Report 9068572 (Version 1)
Quarter: 2013Q1

REPORT INFORMATION
  Report Type: Spontaneous
  Country: US (occurrence: None)
  Receive Date: 20130212
  Receipt Date: 20130212
  Transmission Date: 20140127
  Serious: Yes (Other)
  Sender: FDA-Public Use
  Company Number: None

PATIENT
  Age: 60 Year
  Sex: Female

DRUGS (1)
  1. FORTEO [Suspect]
     Dosage: 20MCG  DAILY  SQ
     Route: 058
     Dates: start: 20121217

REACTIONS (4)
  - Headache [None]
  - Muscle spasms [None]
  - Pain in jaw [None]
  - Neck pain [None]
